FAERS Safety Report 18154471 (Version 1)
Quarter: 2020Q3

REPORT INFORMATION
  Report Type: Spontaneous
  Country: IR (occurrence: IR)
  Receive Date: 20200817
  Receipt Date: 20200817
  Transmission Date: 20201103
  Serious: Yes (Other)
  Sender: FDA-Public Use
  Company Number: IR-SUN PHARMACEUTICAL INDUSTRIES LTD-2020R1-257024

PATIENT
  Age: 23 Year
  Sex: Female

DRUGS (4)
  1. PREDNISOLONE. [Suspect]
     Active Substance: PREDNISOLONE
     Indication: BRONCHOPULMONARY ASPERGILLOSIS ALLERGIC
     Dosage: 25 MILLIGRAM, QD
     Route: 065
  2. IPRATROPIUM [Suspect]
     Active Substance: IPRATROPIUM
     Indication: BRONCHOPULMONARY ASPERGILLOSIS ALLERGIC
     Dosage: UNK
  3. SALMETEROL [Suspect]
     Active Substance: SALMETEROL
     Indication: BRONCHOPULMONARY ASPERGILLOSIS ALLERGIC
     Dosage: UNK
     Route: 065
  4. FLUTICASONE. [Suspect]
     Active Substance: FLUTICASONE
     Indication: BRONCHOPULMONARY ASPERGILLOSIS ALLERGIC
     Dosage: UNK
     Route: 065

REACTIONS (2)
  - Drug ineffective [Unknown]
  - Atypical mycobacterium test positive [Recovered/Resolved]
